FAERS Safety Report 20781359 (Version 2)
Quarter: 2022Q2

REPORT INFORMATION
  Report Type: Spontaneous
  Country: IL (occurrence: IL)
  Receive Date: 20220504
  Receipt Date: 20220601
  Transmission Date: 20220720
  Serious: Yes (Hospitalization)
  Sender: FDA-Public Use
  Company Number: IL-LUPIN PHARMACEUTICALS INC.-2022-06455

PATIENT
  Age: 46 Year
  Sex: Female

DRUGS (20)
  1. AMLODIPINE [Suspect]
     Active Substance: AMLODIPINE BESYLATE
     Indication: Hypertension
     Dosage: 5 MG, QD, STARTED ON POD 5
     Route: 048
  2. MORPHINE [Suspect]
     Active Substance: MORPHINE
     Indication: Product used for unknown indication
     Dosage: 5 MG
     Route: 065
  3. FENTANYL [Suspect]
     Active Substance: FENTANYL
     Indication: Product used for unknown indication
     Dosage: 100 MICROGRAM
     Route: 065
  4. ASPIRIN [Suspect]
     Active Substance: ASPIRIN
     Indication: Prophylaxis
     Dosage: 100 MG, QD, FROM THE EARLY 2ND TRIMESTER
     Route: 065
  5. MAGNESIUM SULFATE [Suspect]
     Active Substance: MAGNESIUM SULFATE
     Indication: Prophylaxis
     Dosage: UNK
     Route: 065
  6. PROPOFOL [Suspect]
     Active Substance: PROPOFOL
     Indication: Product used for unknown indication
     Dosage: 300 MG
     Route: 065
  7. MIDAZOLAM [Suspect]
     Active Substance: MIDAZOLAM
     Indication: Product used for unknown indication
     Dosage: 2 MG
     Route: 065
  8. SUCCINYLCHOLINE [Suspect]
     Active Substance: SUCCINYLCHOLINE
     Indication: Product used for unknown indication
     Dosage: 100 MG
     Route: 065
  9. ROCURONIUM [Suspect]
     Active Substance: ROCURONIUM BROMIDE
     Indication: Product used for unknown indication
     Dosage: 10 MG
     Route: 065
  10. CLINDAMYCIN [Suspect]
     Active Substance: CLINDAMYCIN
     Indication: Product used for unknown indication
     Dosage: 900 MG
     Route: 065
  11. OXYTOCIN [Suspect]
     Active Substance: OXYTOCIN
     Indication: Product used for unknown indication
     Dosage: 25 UNIT
     Route: 065
  12. HEPARIN SODIUM [Suspect]
     Active Substance: HEPARIN SODIUM
     Indication: Thrombosis prophylaxis
     Dosage: UNK
     Route: 065
  13. LABETALOL [Suspect]
     Active Substance: LABETALOL\LABETALOL HYDROCHLORIDE
     Indication: Hypertension
     Dosage: 10 MG
     Route: 065
  14. LABETALOL [Suspect]
     Active Substance: LABETALOL\LABETALOL HYDROCHLORIDE
     Dosage: 200 MG, TID, THRICE DAILY, STARTED ON POD 2
     Route: 065
  15. ATROPINE [Suspect]
     Active Substance: ATROPINE
     Indication: Product used for unknown indication
     Dosage: 1 MG
     Route: 065
  16. NEOSTIGMINE [Suspect]
     Active Substance: NEOSTIGMINE
     Indication: Product used for unknown indication
     Dosage: 2.5 MG
     Route: 065
  17. TRANEXAMIC ACID [Suspect]
     Active Substance: TRANEXAMIC ACID
     Indication: Product used for unknown indication
     Dosage: 1 GRAM
     Route: 065
  18. METAMIZOLE [Concomitant]
     Active Substance: METAMIZOLE
     Indication: Analgesic therapy
     Dosage: UNK
     Route: 065
  19. TRAMADOL [Concomitant]
     Active Substance: TRAMADOL
     Indication: Analgesic therapy
     Dosage: UNK
     Route: 065
  20. ACETAMINOPHEN [Concomitant]
     Active Substance: ACETAMINOPHEN
     Indication: Analgesic therapy
     Dosage: UNK
     Route: 065

REACTIONS (2)
  - Exposure during pregnancy [Unknown]
  - Drug ineffective [Unknown]
